FAERS Safety Report 22369799 (Version 1)
Quarter: 2023Q2

REPORT INFORMATION
  Report Type: Spontaneous
  Country: US (occurrence: US)
  Receive Date: 20230526
  Receipt Date: 20230526
  Transmission Date: 20230721
  Serious: No
  Sender: FDA-Public Use
  Company Number: US-UCBSA-2023007979

PATIENT
  Sex: Female
  Weight: 79.365 kg

DRUGS (1)
  1. CIMZIA [Suspect]
     Active Substance: CERTOLIZUMAB PEGOL
     Indication: Psoriasis
     Dosage: 400 MILLIGRAM (INJECT 400 MG (2 SYRINGS)), EV 2 WEEKS(QOW)
     Route: 058
     Dates: start: 202301, end: 2023

REACTIONS (1)
  - Hypersensitivity [Unknown]
